FAERS Safety Report 11593919 (Version 2)
Quarter: 2015Q4

REPORT INFORMATION
  Report Type: Spontaneous
  Country: ES (occurrence: ES)
  Receive Date: 20151005
  Receipt Date: 20151016
  Transmission Date: 20160304
  Serious: Yes (Other)
  Sender: FDA-Public Use
  Company Number: ES-JNJFOC-20150919564

PATIENT

DRUGS (7)
  1. BECLOMETHASONE DIPROPIONATE [Suspect]
     Active Substance: BECLOMETHASONE DIPROPIONATE
     Indication: PRODUCT USED FOR UNKNOWN INDICATION
     Route: 065
  2. MERCAPTOPURINE. [Suspect]
     Active Substance: MERCAPTOPURINE
     Indication: PRODUCT USED FOR UNKNOWN INDICATION
     Route: 065
  3. METHOTREXATE [Suspect]
     Active Substance: METHOTREXATE
     Indication: PRODUCT USED FOR UNKNOWN INDICATION
     Route: 065
  4. INFLIXIMAB, RECOMBINANT [Suspect]
     Active Substance: INFLIXIMAB
     Indication: COLITIS ULCERATIVE
     Route: 042
  5. AZATHIOPRINE. [Suspect]
     Active Substance: AZATHIOPRINE
     Indication: PRODUCT USED FOR UNKNOWN INDICATION
     Route: 065
  6. INFLIXIMAB, RECOMBINANT [Suspect]
     Active Substance: INFLIXIMAB
     Indication: COLITIS ULCERATIVE
     Route: 042
  7. TACROLIMUS. [Suspect]
     Active Substance: TACROLIMUS
     Indication: PRODUCT USED FOR UNKNOWN INDICATION
     Route: 065

REACTIONS (12)
  - Colectomy [Unknown]
  - Drug ineffective [Unknown]
  - Meningitis [Unknown]
  - Adverse drug reaction [Unknown]
  - Cerebral thrombosis [Unknown]
  - Therapeutic response decreased [Unknown]
  - Psoriasis [Unknown]
  - Deep vein thrombosis [Unknown]
  - Pneumonitis [Unknown]
  - Prostate cancer [Unknown]
  - Infusion related reaction [Unknown]
  - Maternal exposure before pregnancy [Unknown]
